FAERS Safety Report 11678930 (Version 2)
Quarter: 2015Q4

REPORT INFORMATION
  Report Type: Spontaneous
  Country: US (occurrence: US)
  Receive Date: 20151028
  Receipt Date: 20151119
  Transmission Date: 20160304
  Serious: No
  Sender: FDA-Public Use
  Company Number: US-GLAXOSMITHKLINE-US2015GSK154161

PATIENT
  Age: 64 Year
  Sex: Female

DRUGS (1)
  1. TANZEUM [Suspect]
     Active Substance: ALBIGLUTIDE
     Indication: TYPE 2 DIABETES MELLITUS
     Dosage: 30 MG, WE
     Route: 042
     Dates: start: 201510

REACTIONS (5)
  - Injection site mass [Unknown]
  - Product preparation error [Unknown]
  - Device leakage [Unknown]
  - Injection site discolouration [Unknown]
  - Device use error [Unknown]

NARRATIVE: CASE EVENT DATE: 201510
